FAERS Safety Report 4317065-8 (Version None)
Quarter: 2004Q1

REPORT INFORMATION
  Report Type: 
  Country: None (occurrence: None)
  Receive Date: 20040312
  Receipt Date: 20040225
  Transmission Date: 20041129
  Serious: Yes (Other)
  Sender: FDA-Public Use
  Company Number: 2003163993JP

PATIENT
  Age: 68 Year
  Sex: Female

DRUGS (4)
  1. XALATAN [Suspect]
     Indication: GLAUCOMA
     Dosage: 1 GTT, QD, OPHTHALMIC
     Route: 047
     Dates: start: 20021211, end: 20030202
  2. TATHION (GLUTATHIONE) [Concomitant]
  3. TIMOLOL MALEATE [Concomitant]
  4. GLUCONSAN K (POTASSIUM GLUCONATE) [Concomitant]

REACTIONS (4)
  - ABNORMAL SENSATION IN EYE [None]
  - CORNEAL EPITHELIUM DISORDER [None]
  - DRUG TOXICITY [None]
  - OCULAR HYPERAEMIA [None]
